FAERS Safety Report 8469840 (Version 3)
Quarter: 2013Q3

REPORT INFORMATION
  Report Type: Spontaneous
  Country: US (occurrence: US)
  Receive Date: 20120321
  Receipt Date: 20130809
  Transmission Date: 20140515
  Serious: Yes (Other)
  Sender: FDA-Public Use
  Company Number: US-ROCHE-1022854

PATIENT
  Age: 31 Year
  Sex: Female
  Weight: 58.11 kg

DRUGS (6)
  1. ACCUTANE [Suspect]
     Indication: ACNE CYSTIC
     Route: 065
     Dates: start: 1997
  2. ACCUTANE [Suspect]
     Route: 065
     Dates: start: 1998
  3. ACCUTANE [Suspect]
     Route: 065
     Dates: start: 1999
  4. ACCUTANE [Suspect]
     Route: 065
     Dates: start: 20060531, end: 200702
  5. ORTHO TRI-CYCLEN [Concomitant]
     Indication: CONTRACEPTION
  6. TETRACYCLIN [Concomitant]
     Indication: ACNE

REACTIONS (9)
  - Inflammatory bowel disease [Unknown]
  - Irritable bowel syndrome [Unknown]
  - Emotional distress [Unknown]
  - Herpes zoster [Unknown]
  - Lip dry [Unknown]
  - Cheilitis [Unknown]
  - Fatigue [Unknown]
  - Arthralgia [Unknown]
  - Blood triglycerides increased [Unknown]
